FAERS Safety Report 8232025-2 (Version None)
Quarter: 2012Q1

REPORT INFORMATION
  Report Type: 
  Country: None (occurrence: None)
  Receive Date: 20120323
  Receipt Date: 20120312
  Transmission Date: 20120608
  Serious: Yes (Hospitalization)
  Sender: FDA-Public Use
  Company Number: IE-SANOFI-AVENTIS-2012SA015600

PATIENT
  Sex: Female

DRUGS (5)
  1. ASPIRIN [Concomitant]
  2. MULTAQ [Suspect]
     Indication: ATRIAL FIBRILLATION
     Route: 048
     Dates: start: 20120208, end: 20120305
  3. QUININE SULFATE [Concomitant]
     Dates: end: 20120201
  4. ZIMOVANE [Concomitant]
  5. PANTOPRAZOLE [Concomitant]

REACTIONS (1)
  - THYROID FUNCTION TEST ABNORMAL [None]
